FAERS Safety Report 17085438 (Version 1)
Quarter: 2019Q4

REPORT INFORMATION
  Report Type: Spontaneous
  Country: US (occurrence: US)
  Receive Date: 20191127
  Receipt Date: 20191127
  Transmission Date: 20200122
  Serious: Yes (Other)
  Sender: FDA-Public Use
  Company Number: None

PATIENT
  Age: 62 Year
  Sex: Female
  Weight: 56.25 kg

DRUGS (3)
  1. FASLODEX [Suspect]
     Active Substance: FULVESTRANT
     Indication: BREAST CANCER METASTATIC
     Dosage: ?          OTHER FREQUENCY:MONTHLY INJECTIONS;?
     Route: 030
     Dates: start: 20180921, end: 20191111
  2. ZOLOFT [Concomitant]
     Active Substance: SERTRALINE HYDROCHLORIDE
  3. SYNTHROID [Concomitant]
     Active Substance: LEVOTHYROXINE SODIUM

REACTIONS (10)
  - Immunodeficiency [None]
  - Rash [None]
  - Nausea [None]
  - Mood altered [None]
  - Product substitution issue [None]
  - Herpes simplex [None]
  - Insomnia [None]
  - Post procedural complication [None]
  - Influenza like illness [None]
  - Hot flush [None]

NARRATIVE: CASE EVENT DATE: 20181001
